FAERS Safety Report 7596748-0 (Version None)
Quarter: 2011Q3

REPORT INFORMATION
  Report Type: 
  Country: None (occurrence: None)
  Receive Date: 20110708
  Receipt Date: 20110705
  Transmission Date: 20111222
  Serious: No
  Sender: FDA-Public Use
  Company Number: US-PFIZER INC-2011108667

PATIENT
  Sex: Female

DRUGS (10)
  1. NITROSTAT [Suspect]
     Dosage: 0.4 MG, 1X/DAY
     Route: 060
  2. LORATADINE [Concomitant]
     Indication: HYPERSENSITIVITY
     Dosage: 10 MG, AS NEEDED
     Route: 048
  3. TOPROL-XL [Concomitant]
     Dosage: 100 MG, DAILY
  4. LISINOPRIL [Concomitant]
     Dosage: 30 MG, DAILY
  5. NITROSTAT [Suspect]
     Indication: CHEST PAIN
     Dosage: 0.4 MG, DAILY
     Route: 060
  6. NITROSTAT [Suspect]
     Dosage: 0.4 MG, 1X/DAY
     Route: 060
  7. LORAZEPAM [Concomitant]
     Dosage: .5 MG, 3X/DAY
  8. GEMFIBROZIL [Concomitant]
     Dosage: 600 MG, DAILY
  9. CRESTOR [Concomitant]
     Dosage: 5 MG, UNK (10MG HALF A TABLET)
  10. NEXIUM [Concomitant]
     Dosage: 40 MG, DAILY
     Route: 048

REACTIONS (1)
  - DRUG INEFFECTIVE [None]
